FAERS Safety Report 9904420 (Version 2)
Quarter: 2014Q1

REPORT INFORMATION
  Report Type: Spontaneous
  Country: RO (occurrence: RO)
  Receive Date: 20140218
  Receipt Date: 20140218
  Transmission Date: 20141002
  Serious: Yes (Life-Threatening, Other)
  Sender: FDA-Public Use
  Company Number: RO-JNJFOC-20140204902

PATIENT
  Age: 27 Year
  Sex: Female
  Weight: 56 kg

DRUGS (7)
  1. REMICADE [Suspect]
     Indication: RHEUMATOID ARTHRITIS
     Route: 042
     Dates: start: 20110726
  2. REMICADE [Suspect]
     Indication: RHEUMATOID ARTHRITIS
     Route: 042
     Dates: start: 20140206, end: 20140206
  3. CYCLOSPORINE [Concomitant]
     Indication: RHEUMATOID ARTHRITIS
     Route: 048
     Dates: start: 200811
  4. PREDNISON [Concomitant]
     Indication: RHEUMATOID ARTHRITIS
     Dosage: 7.5 TO 10 MG
     Route: 048
     Dates: start: 200906
  5. CALCIUM AND VITAMIN D3 [Concomitant]
     Indication: OSTEOPOROSIS PROPHYLAXIS
     Dosage: 500 MG OF CALCIUM AND 400 OF VITAMIN D UNIT
     Route: 048
     Dates: start: 20090610
  6. HYDROCORTISONE HEMISUCCINATE [Concomitant]
     Indication: PREMEDICATION
     Route: 065
     Dates: start: 20140206
  7. AERIUS [Concomitant]
     Indication: RHINITIS ALLERGIC
     Route: 065
     Dates: start: 201312

REACTIONS (4)
  - Hyperkinetic heart syndrome [Unknown]
  - Angioedema [Recovered/Resolved]
  - Infusion related reaction [Recovered/Resolved]
  - Rhinitis allergic [Unknown]
